FAERS Safety Report 6204813-5 (Version None)
Quarter: 2009Q2

REPORT INFORMATION
  Report Type: 
  Country: None (occurrence: None)
  Receive Date: 20090527
  Receipt Date: 20090515
  Transmission Date: 20091009
  Serious: Yes (Hospitalization)
  Sender: FDA-Public Use
  Company Number: ZA-PFIZER INC-2008091449

PATIENT
  Age: 47 Year

DRUGS (18)
  1. MARAVIROC [Suspect]
     Dosage: UNK
     Route: 048
     Dates: start: 20060411
  2. COMBIVIR [Suspect]
     Dosage: 1 TABLET, 2X/DAY
     Route: 048
     Dates: start: 20060411
  3. PETHIDINE [Concomitant]
     Dosage: 50 MG, TDS AS NEEDED
     Route: 030
     Dates: start: 20081024, end: 20081026
  4. SODIUM PHOSPHATES [Concomitant]
     Dosage: STAT
     Route: 054
     Dates: start: 20081023, end: 20081023
  5. DOLOROL FORTE [Concomitant]
     Dosage: 2 TDS, AS NEEDED
     Route: 048
     Dates: start: 20081024, end: 20081106
  6. OXYGEN [Concomitant]
     Dosage: 4 L/MIN, UNK
     Dates: start: 20081024, end: 20081026
  7. RINGER LACTATE ^BIOSEDRA^ [Concomitant]
     Dosage: 1 L, EIGHT HOURLY
     Route: 042
     Dates: start: 20081024, end: 20081026
  8. LACTULOSE [Concomitant]
     Dosage: 10 ML, DAILY
     Route: 048
  9. FENTANYL [Concomitant]
     Dosage: 100 UG, STAT
     Route: 042
     Dates: start: 20081024, end: 20081024
  10. ATERAX [Concomitant]
     Dosage: 75 MG, 2 HOURS PRE-OP, STAT
     Route: 048
     Dates: start: 20081024, end: 20081024
  11. LIDOCAINE [Concomitant]
     Dosage: 140 MG, STAT
     Route: 042
     Dates: start: 20081024, end: 20081024
  12. PROPOFOL [Concomitant]
     Dosage: 100 MG, STAT
     Route: 042
     Dates: start: 20081024, end: 20081024
  13. SUCCINYLCHOLINE CHLORIDE [Concomitant]
     Dosage: 100 G, STAT
     Route: 042
     Dates: start: 20081024, end: 20081024
  14. ALL OTHER THERAPEUTIC PRODUCTS [Concomitant]
     Dosage: 8 MG, STAT
     Route: 042
     Dates: start: 20081024, end: 20081024
  15. MEFOXIN [Concomitant]
     Dosage: STAT
     Route: 042
     Dates: start: 20081024, end: 20081024
  16. BUPIVACAINE [Concomitant]
     Dosage: 20 ML, 5%
     Route: 030
     Dates: start: 20081024, end: 20081024
  17. NEOSTIGMINE [Concomitant]
     Dosage: 0.5 MG, STAT
     Route: 042
     Dates: start: 20081024, end: 20081024
  18. GLYCOPYRROLATE [Concomitant]
     Dosage: 0.2 MG, STAT
     Route: 042
     Dates: start: 20081024, end: 20081024

REACTIONS (1)
  - CHOLELITHIASIS [None]
